FAERS Safety Report 9328171 (Version 1)
Quarter: 2013Q2

REPORT INFORMATION
  Report Type: Spontaneous
  Country: IT (occurrence: IT)
  Receive Date: 20130604
  Receipt Date: 20130604
  Transmission Date: 20140414
  Serious: Yes (Hospitalization, Other)
  Sender: FDA-Public Use
  Company Number: IT-BRISTOL-MYERS SQUIBB COMPANY-18957597

PATIENT
  Age: 75 Year
  Sex: Female

DRUGS (9)
  1. COUMADIN TABS 5 MG [Suspect]
     Dosage: 1DF: 1UNIT
     Route: 048
     Dates: start: 20110101, end: 20130508
  2. PAROXETINE [Concomitant]
     Dosage: TBLT
  3. ACESISTEM [Concomitant]
     Dosage: 1 DF: 20+12.5 MG TAB
  4. NORMOTHEN [Concomitant]
     Dosage: TABLT
  5. DEPALGOS [Concomitant]
     Dosage: 1 DF: 5+325 MG TAB
  6. PRAZENE [Concomitant]
     Dosage: 1 DF: 15 MG/ML ORAL DROPS SOLUTION
     Route: 048
  7. LIMPIDEX [Concomitant]
     Dosage: CAPSULE
  8. CELEBREX [Concomitant]
     Dosage: CAPS
  9. CORDARONE [Concomitant]
     Dosage: TABLT

REACTIONS (4)
  - Microcytic anaemia [Recovering/Resolving]
  - Haematoma [Recovering/Resolving]
  - Fall [Unknown]
  - Pelvic fracture [Unknown]
